FAERS Safety Report 18375293 (Version 2)
Quarter: 2020Q4

REPORT INFORMATION
  Report Type: Spontaneous
  Country: GR (occurrence: GR)
  Receive Date: 20201012
  Receipt Date: 20201023
  Transmission Date: 20210114
  Serious: Yes (Other)
  Sender: FDA-Public Use
  Company Number: GR-SAMSUNG BIOEPIS-SB-2020-30726

PATIENT
  Age: 57 Year
  Sex: Female

DRUGS (4)
  1. COAPROVEL [Concomitant]
     Active Substance: HYDROCHLOROTHIAZIDE\IRBESARTAN
     Indication: PRODUCT USED FOR UNKNOWN INDICATION
     Dosage: 300 PLUS 12.5 MILLIGRAM (ONE TABLET PER DAY)
     Route: 065
  2. BENEPALI [Suspect]
     Active Substance: ETANERCEPT
     Indication: RHEUMATOID ARTHRITIS
     Route: 058
     Dates: start: 20190926
  3. ROSUVASTATIN/MYLAN [Concomitant]
     Indication: PRODUCT USED FOR UNKNOWN INDICATION
     Dosage: (ONE TABLET PER DAY)
     Route: 065
  4. LOBIVON [Concomitant]
     Active Substance: NEBIVOLOL HYDROCHLORIDE
     Indication: PRODUCT USED FOR UNKNOWN INDICATION
     Dosage: (ONE TABLET PER DAY)
     Route: 065

REACTIONS (2)
  - Fall [Not Recovered/Not Resolved]
  - Radius fracture [Not Recovered/Not Resolved]

NARRATIVE: CASE EVENT DATE: 20200426
